FAERS Safety Report 15005260 (Version 1)
Quarter: 2018Q2

REPORT INFORMATION
  Report Type: Spontaneous
  Country: DE (occurrence: DE)
  Receive Date: 20180613
  Receipt Date: 20180613
  Transmission Date: 20180711
  Serious: Yes (Hospitalization, Other)
  Sender: FDA-Public Use
  Company Number: DE-JNJFOC-20180601118

PATIENT
  Age: 38 Year
  Sex: Female
  Weight: 66 kg

DRUGS (6)
  1. RABIPUR [Concomitant]
     Active Substance: RABIES VIRUS STRAIN FLURY LEP ANTIGEN (PROPIOLACTONE INACTIVATED)
     Indication: PROPHYLAXIS
     Route: 030
     Dates: start: 20180319
  2. IBUPROFEN. [Suspect]
     Active Substance: IBUPROFEN
     Route: 065
  3. IBUPROFEN. [Suspect]
     Active Substance: IBUPROFEN
     Indication: HEADACHE
     Route: 065
     Dates: start: 20180413
  4. RABIPUR [Concomitant]
     Active Substance: RABIES VIRUS STRAIN FLURY LEP ANTIGEN (PROPIOLACTONE INACTIVATED)
     Indication: PROPHYLAXIS
     Route: 030
     Dates: start: 20180313, end: 20180313
  5. L THYROXINE [Concomitant]
     Active Substance: LEVOTHYROXINE SODIUM
     Indication: HYPOTHYROIDISM
     Route: 065
  6. RABIPUR [Concomitant]
     Active Substance: RABIES VIRUS STRAIN FLURY LEP ANTIGEN (PROPIOLACTONE INACTIVATED)
     Indication: PROPHYLAXIS
     Route: 030
     Dates: start: 20180312

REACTIONS (8)
  - Anaphylactic reaction [Recovered/Resolved]
  - Flushing [Recovered/Resolved]
  - Swollen tongue [Recovered/Resolved]
  - Rash [Recovered/Resolved]
  - Pruritus generalised [Recovered/Resolved]
  - Inappropriate schedule of drug administration [Unknown]
  - Generalised erythema [Recovered/Resolved]
  - Urticaria [Recovered/Resolved]

NARRATIVE: CASE EVENT DATE: 20180413
